FAERS Safety Report 9564149 (Version 1)
Quarter: 2013Q3

REPORT INFORMATION
  Report Type: Report from Study
  Country: DE (occurrence: DE)
  Receive Date: 20130929
  Receipt Date: 20130929
  Transmission Date: 20140515
  Serious: Yes (Hospitalization)
  Sender: FDA-Public Use
  Company Number: DE-009507513-1309DEU013135

PATIENT
  Age: 52 Year
  Sex: Male

DRUGS (1)
  1. BOCEPREVIR [Suspect]
     Indication: CHRONIC HEPATITIS
     Dosage: UNK
     Route: 048
     Dates: end: 20130829

REACTIONS (1)
  - Epilepsy [Recovering/Resolving]
